FAERS Safety Report 6509884-4 (Version None)
Quarter: 2009Q4

REPORT INFORMATION
  Report Type: 
  Country: None (occurrence: None)
  Receive Date: 20091222
  Receipt Date: 20091208
  Transmission Date: 20100525
  Serious: Yes (Hospitalization)
  Sender: FDA-Public Use
  Company Number: PHHY2009NZ53040

PATIENT
  Sex: Female

DRUGS (4)
  1. CLOZARIL [Suspect]
     Indication: SCHIZOPHRENIA
     Dosage: 200 MG, UNK
     Dates: start: 20090704
  2. CLOZARIL [Suspect]
     Dosage: 175 MG, UNK
     Route: 048
  3. BENZOTROPINE [Concomitant]
     Dosage: 1 MG, NOCTE
  4. TERAZOSIN HCL [Concomitant]
     Dosage: 1 MG NOCTE

REACTIONS (3)
  - INFECTION [None]
  - MYOCARDITIS [None]
  - TACHYCARDIA [None]
